FAERS Safety Report 8674332 (Version 5)
Quarter: 2013Q2

REPORT INFORMATION
  Report Type: Spontaneous
  Country: IT (occurrence: IT)
  Receive Date: 20120720
  Receipt Date: 20130611
  Transmission Date: 20140414
  Serious: Yes (Hospitalization)
  Sender: FDA-Public Use
  Company Number: IT-BIOGENIDEC-2011BI048250

PATIENT
  Age: 44 Year
  Sex: Male

DRUGS (5)
  1. TYSABRI [Suspect]
     Indication: RELAPSING-REMITTING MULTIPLE SCLEROSIS
     Route: 042
     Dates: start: 20090601, end: 20110601
  2. RAMIPRIL [Concomitant]
     Indication: HYPERTENSION
  3. LASIX [Concomitant]
     Indication: HYPERTENSION
  4. TALOFEN [Concomitant]
     Route: 048
     Dates: start: 20110728, end: 20111221
  5. DEPAKIN [Concomitant]
     Route: 048
     Dates: start: 20110111, end: 20111221

REACTIONS (1)
  - Multiple sclerosis relapse [Unknown]
